FAERS Safety Report 4426719-4 (Version None)
Quarter: 2004Q3

REPORT INFORMATION
  Report Type: 
  Country: None (occurrence: None)
  Receive Date: 20040816
  Receipt Date: 20040803
  Transmission Date: 20050211
  Serious: Yes (Hospitalization)
  Sender: FDA-Public Use
  Company Number: US-JNJFOC-20040704547

PATIENT
  Sex: Female
  Weight: 61.24 kg

DRUGS (1)
  1. TOPAMAX [Suspect]
     Indication: MIGRAINE PROPHYLAXIS
     Route: 049

REACTIONS (5)
  - APHASIA [None]
  - ATRIAL FIBRILLATION [None]
  - BLOOD THYROID STIMULATING HORMONE DECREASED [None]
  - GOITRE [None]
  - HYPOKALAEMIA [None]
